FAERS Safety Report 16084260 (Version 1)
Quarter: 2019Q1

REPORT INFORMATION
  Report Type: Spontaneous
  Country: US (occurrence: US)
  Receive Date: 20190318
  Receipt Date: 20190318
  Transmission Date: 20190418
  Serious: Yes (Hospitalization, Other)
  Sender: FDA-Public Use
  Company Number: US-PFIZER INC-2019113529

PATIENT
  Age: 64 Year
  Sex: Female

DRUGS (1)
  1. GENOTROPIN MQ [Suspect]
     Active Substance: SOMATROPIN
     Dosage: 1.6 MG, DAILY

REACTIONS (8)
  - Cerebrovascular accident [Unknown]
  - Movement disorder [Unknown]
  - Speech disorder [Unknown]
  - Blood pressure decreased [Unknown]
  - Weight increased [Unknown]
  - Headache [Unknown]
  - Leukaemia [Unknown]
  - Back pain [Unknown]

NARRATIVE: CASE EVENT DATE: 201709
